FAERS Safety Report 19661258 (Version 2)
Quarter: 2021Q3

REPORT INFORMATION
  Report Type: Spontaneous
  Country: TW (occurrence: TW)
  Receive Date: 20210805
  Receipt Date: 20210813
  Transmission Date: 20211014
  Serious: Yes (Hospitalization, Other)
  Sender: FDA-Public Use
  Company Number: NVSC2021TW166528

PATIENT
  Age: 17 Year
  Sex: Male
  Weight: 37.7 kg

DRUGS (2)
  1. METHYLPREDNISOLONE. [Concomitant]
     Active Substance: METHYLPREDNISOLONE
     Indication: GRAFT VERSUS HOST DISEASE
     Dosage: 8 MG, BID (METICORT)
     Route: 048
     Dates: start: 20210630
  2. CYCLOSPORINE. [Suspect]
     Active Substance: CYCLOSPORINE
     Indication: GRAFT VERSUS HOST DISEASE
     Dosage: 80 MG, BID
     Route: 048
     Dates: start: 20201221

REACTIONS (4)
  - Acute graft versus host disease in skin [Recovering/Resolving]
  - Erythema [Unknown]
  - Hepatic enzyme increased [Unknown]
  - Hyperbilirubinaemia [Unknown]

NARRATIVE: CASE EVENT DATE: 202106
